FAERS Safety Report 14060496 (Version 3)
Quarter: 2018Q1

REPORT INFORMATION
  Report Type: Report from Study
  Country: US (occurrence: US)
  Receive Date: 20171006
  Receipt Date: 20180130
  Transmission Date: 20180508
  Serious: Yes (Death, Hospitalization, Other)
  Sender: FDA-Public Use
  Company Number: US-GILEAD-2017-0296267

PATIENT

DRUGS (13)
  1. AMIODARONE [Concomitant]
     Active Substance: AMIODARONE
  2. ALLOPURINOL. [Concomitant]
     Active Substance: ALLOPURINOL
  3. PANTOPRAZOLE [Concomitant]
     Active Substance: PANTOPRAZOLE
  4. TACROLIMUS. [Concomitant]
     Active Substance: TACROLIMUS
  5. RANOLAZINE. [Suspect]
     Active Substance: RANOLAZINE
     Indication: VENTRICULAR ARRHYTHMIA
     Dosage: UNK
     Route: 065
  6. FUROSEMIDE. [Concomitant]
     Active Substance: FUROSEMIDE
  7. HYDRALAZINE [Concomitant]
     Active Substance: HYDRALAZINE HYDROCHLORIDE
  8. LASIX [Concomitant]
     Active Substance: FUROSEMIDE
  9. ASPIRIN                            /00002701/ [Concomitant]
     Active Substance: ASPIRIN
  10. ISOSORBIDE DINITRATE. [Concomitant]
     Active Substance: ISOSORBIDE DINITRATE
  11. MEXITIL [Concomitant]
     Active Substance: MEXILETINE HYDROCHLORIDE
  12. CARVEDILOL. [Concomitant]
     Active Substance: CARVEDILOL
  13. LOSARTAN. [Concomitant]
     Active Substance: LOSARTAN

REACTIONS (9)
  - Cardiac failure congestive [Fatal]
  - Chest pain [Unknown]
  - Cardiac failure [Unknown]
  - Hypertension [Unknown]
  - Nervous system disorder [Unknown]
  - Arrhythmia [Fatal]
  - Ventricular tachycardia [Unknown]
  - Cardiovascular disorder [Unknown]
  - Sudden death [Fatal]

NARRATIVE: CASE EVENT DATE: 20160714
